FAERS Safety Report 8340505-4 (Version None)
Quarter: 2012Q2

REPORT INFORMATION
  Report Type: 
  Country: None (occurrence: None)
  Receive Date: 20120507
  Receipt Date: 20090813
  Transmission Date: 20120825
  Serious: No
  Sender: FDA-Public Use
  Company Number: US-TEVA-2009009187

PATIENT
  Sex: Male
  Weight: 120.31 kg

DRUGS (2)
  1. TREANDA [Suspect]
     Indication: CHRONIC LYMPHOCYTIC LEUKAEMIA
     Route: 041
     Dates: start: 20090408, end: 20090507
  2. TREANDA [Suspect]
     Route: 042
     Dates: start: 20090603, end: 20090604

REACTIONS (3)
  - THROMBOCYTOPENIA [None]
  - DRUG INEFFECTIVE [None]
  - PLATELET TRANSFUSION [None]
